FAERS Safety Report 20545489 (Version 1)
Quarter: 2022Q1

REPORT INFORMATION
  Report Type: Spontaneous
  Country: JP (occurrence: JP)
  Receive Date: 20220303
  Receipt Date: 20220303
  Transmission Date: 20220423
  Serious: Yes (Other)
  Sender: FDA-Public Use
  Company Number: None

PATIENT
  Age: 72 Year
  Sex: Female

DRUGS (4)
  1. PREDNISOLONE [Suspect]
     Active Substance: PREDNISOLONE
     Indication: Myopathy
     Dosage: 65 MILLIGRAM, APPROXIMATELY 1 MG/KG BODY WEIGHT; IN SEPTEMBER 2016 PREDNISOLONE TAPERED TO 4 MG
     Route: 048
     Dates: start: 201511
  2. PREDNISOLONE [Suspect]
     Active Substance: PREDNISOLONE
     Dosage: 20 MILLIGRAM, APPROXIMATELY 0.3 MG/KG BODY WEIGHT
     Route: 048
     Dates: start: 201610
  3. TACROLIMUS [Suspect]
     Active Substance: TACROLIMUS
     Indication: Myopathy
     Route: 048
     Dates: start: 201705
  4. PRIVIGEN [Concomitant]
     Active Substance: HUMAN IMMUNOGLOBULIN G
     Indication: Myopathy
     Dosage: 400 MILLIGRAM/KILOGRAM, 5 DAYS PER MONTH
     Route: 042
     Dates: start: 201610

REACTIONS (4)
  - Renal injury [Unknown]
  - Weight increased [Unknown]
  - Hair disorder [Unknown]
  - Off label use [Unknown]

NARRATIVE: CASE EVENT DATE: 20170101
